FAERS Safety Report 12272317 (Version 1)
Quarter: 2016Q2

REPORT INFORMATION
  Report Type: Spontaneous
  Country: CN (occurrence: CN)
  Receive Date: 20160415
  Receipt Date: 20160415
  Transmission Date: 20160815
  Serious: Yes (Other)
  Sender: FDA-Public Use
  Company Number: CN-PFIZER INC-2016210227

PATIENT
  Age: 65 Year
  Sex: Female
  Weight: 55 kg

DRUGS (2)
  1. LIPITOR [Suspect]
     Active Substance: ATORVASTATIN CALCIUM
     Indication: CORONARY ARTERY DISEASE
     Dosage: 20 MG, 1X/DAY
     Route: 048
     Dates: start: 20151124, end: 20151130
  2. HERBESSER [Suspect]
     Active Substance: DILTIAZEM HYDROCHLORIDE
     Indication: CORONARY ARTERY DISEASE
     Dosage: 15 MG, 3X/DAY
     Route: 048
     Dates: start: 20151125, end: 20151201

REACTIONS (3)
  - Hepatic function abnormal [Recovering/Resolving]
  - Arteriospasm coronary [Unknown]
  - Chest pain [Unknown]

NARRATIVE: CASE EVENT DATE: 20151124
